FAERS Safety Report 5512918-7 (Version None)
Quarter: 2007Q4

REPORT INFORMATION
  Report Type: 
  Country: None (occurrence: None)
  Receive Date: 20071112
  Receipt Date: 20071108
  Transmission Date: 20080405
  Serious: Yes (Death)
  Sender: FDA-Public Use
  Company Number: B0494786A

PATIENT
  Age: 10 Month
  Sex: Male

DRUGS (4)
  1. ZIDOVUDINE [Suspect]
     Indication: HIV INFECTION
     Dosage: 115MG TWICE PER DAY
     Route: 048
     Dates: start: 20070220
  2. LAMIVUDINE [Suspect]
     Indication: HIV INFECTION
     Dosage: 45MG TWICE PER DAY
     Route: 048
     Dates: start: 20070220
  3. KALETRA [Suspect]
     Indication: HIV INFECTION
     Dosage: 1.8ML TWICE PER DAY
     Route: 048
     Dates: start: 20070220
  4. BACTRIM [Concomitant]
     Indication: PROPHYLAXIS

REACTIONS (1)
  - DEATH [None]
